FAERS Safety Report 13449240 (Version 2)
Quarter: 2017Q2

REPORT INFORMATION
  Report Type: Spontaneous
  Country: FR (occurrence: FR)
  Receive Date: 20170417
  Receipt Date: 20170417
  Transmission Date: 20170830
  Serious: Yes (Death)
  Sender: FDA-Public Use
  Company Number: FR-PFIZER INC-2017167678

PATIENT
  Age: 100 Year
  Sex: Female
  Weight: 59 kg

DRUGS (4)
  1. SPIRONOLACTONE. [Suspect]
     Active Substance: SPIRONOLACTONE
     Indication: CARDIAC FAILURE
     Dosage: 0.5 DF, 1X/DAY
     Route: 048
     Dates: start: 20080801, end: 20170217
  2. FUROSEMIDE BIOGARAN [Suspect]
     Active Substance: FUROSEMIDE
     Indication: CARDIAC FAILURE
     Dosage: 40 MG, 1X/DAY
     Route: 048
     Dates: start: 20080801, end: 20170217
  3. KARDEGIC [Concomitant]
     Active Substance: ASPIRIN LYSINE
  4. ELIQUIS [Suspect]
     Active Substance: APIXABAN
     Indication: ISCHAEMIC STROKE
     Dosage: 5 MG, 2X/DAY
     Route: 048
     Dates: start: 20170209, end: 20170217

REACTIONS (7)
  - Coma [Fatal]
  - Prescribed overdose [Unknown]
  - Haematoma [Fatal]
  - Decreased appetite [Fatal]
  - Cyanosis [Fatal]
  - Abdominal pain [Fatal]
  - Melaena [Fatal]

NARRATIVE: CASE EVENT DATE: 20170213
